FAERS Safety Report 7097951-9 (Version None)
Quarter: 2010Q4

REPORT INFORMATION
  Report Type: 
  Country: None (occurrence: None)
  Receive Date: 20101112
  Receipt Date: 20101101
  Transmission Date: 20110411
  Serious: Yes (Hospitalization, Other)
  Sender: FDA-Public Use
  Company Number: US-JNJFOC-20101101755

PATIENT
  Sex: Female
  Weight: 72.58 kg

DRUGS (5)
  1. SANDOZ FENTANYL TRANSDERMAL SYSTEM [Suspect]
     Indication: OSTEOARTHRITIS
     Dosage: 75 UG/ HR (2 PATCHES) AND 50 UG/ HR EVERY 48 HOURS
     Route: 062
  2. SANDOZ FENTANYL TRANSDERMAL SYSTEM [Suspect]
     Route: 062
  3. PERCOCET [Concomitant]
     Dosage: 10/650
     Route: 048
  4. METHADONE HCL [Concomitant]
     Route: 048
  5. DILAUDID [Concomitant]
     Route: 048

REACTIONS (6)
  - APPLICATION SITE IRRITATION [None]
  - APPLICATION SITE RASH [None]
  - FIBRIN D DIMER INCREASED [None]
  - LUNG NEOPLASM [None]
  - PRODUCT ADHESION ISSUE [None]
  - PULMONARY EMBOLISM [None]
